FAERS Safety Report 16296136 (Version 4)
Quarter: 2020Q4

REPORT INFORMATION
  Report Type: Report from Study
  Country: US (occurrence: US)
  Receive Date: 20190510
  Receipt Date: 20201204
  Transmission Date: 20210113
  Serious: Yes (Life-Threatening, Hospitalization)
  Sender: FDA-Public Use
  Company Number: PHEH2019US019766

PATIENT
  Sex: Male

DRUGS (2)
  1. COSENTYX [Suspect]
     Active Substance: SECUKINUMAB
     Indication: PRODUCT USED FOR UNKNOWN INDICATION
     Dosage: UNK
     Route: 065
  2. COSENTYX [Suspect]
     Active Substance: SECUKINUMAB
     Dosage: 300 MG, QMO
     Route: 065

REACTIONS (7)
  - COVID-19 [Unknown]
  - Psoriasis [Unknown]
  - Inflammation [Unknown]
  - Discomfort [Unknown]
  - Nasopharyngitis [Unknown]
  - Near death experience [Unknown]
  - Viral infection [Unknown]

NARRATIVE: CASE EVENT DATE: 2020
